FAERS Safety Report 18504914 (Version 1)
Quarter: 2020Q4

REPORT INFORMATION
  Report Type: Other
  Country: CA (occurrence: CA)
  Receive Date: 20201115
  Receipt Date: 20201115
  Transmission Date: 20210114
  Serious: Yes (Death)
  Sender: FDA-Public Use
  Company Number: CA-CELLTRION INC.-2020CA031560

PATIENT

DRUGS (13)
  1. VINCRISTINE SULFATE. [Suspect]
     Active Substance: VINCRISTINE SULFATE
     Indication: BURKITT^S LEUKAEMIA
     Route: 065
  2. ETOPOSIDE. [Suspect]
     Active Substance: ETOPOSIDE
     Indication: BURKITT^S LEUKAEMIA
     Route: 065
  3. FLUDARABINE PHOSPHATE FOR INJECTION [Suspect]
     Active Substance: FLUDARABINE PHOSPHATE
     Indication: BURKITT^S LEUKAEMIA
     Route: 065
  4. CYCLOPHOSPHAMIDE. [Suspect]
     Active Substance: CYCLOPHOSPHAMIDE
     Indication: BURKITT^S LEUKAEMIA
     Route: 065
  5. CYTARABINE INJECTION [Suspect]
     Active Substance: CYTARABINE
     Indication: MYELODYSPLASTIC SYNDROME
     Route: 065
  6. DAUNOMYCIN /00128201/ [Suspect]
     Active Substance: DAUNORUBICIN
     Indication: BURKITT^S LEUKAEMIA
     Route: 065
  7. RITUXIMAB (UNKNOWN) [Suspect]
     Active Substance: RITUXIMAB
     Indication: BURKITT^S LEUKAEMIA
     Route: 065
  8. CYTARABINE INJECTION [Suspect]
     Active Substance: CYTARABINE
     Indication: BURKITT^S LEUKAEMIA
  9. DOXORUBICIN HYDROCHLORIDE INJECTION [Suspect]
     Active Substance: DOXORUBICIN HYDROCHLORIDE
     Indication: BURKITT^S LEUKAEMIA
     Route: 065
  10. IDARUBICIN [Suspect]
     Active Substance: IDARUBICIN
     Indication: BURKITT^S LEUKAEMIA
     Route: 065
  11. METHOTREXATE. [Suspect]
     Active Substance: METHOTREXATE
     Indication: BURKITT^S LEUKAEMIA
     Route: 065
  12. IFOSFAMIDE FOR INJECTION , USP [Suspect]
     Active Substance: IFOSFAMIDE
     Indication: BURKITT^S LEUKAEMIA
     Route: 065
  13. LEUCOVORIN. [Suspect]
     Active Substance: LEUCOVORIN
     Indication: BURKITT^S LEUKAEMIA
     Route: 065

REACTIONS (8)
  - Second primary malignancy [Fatal]
  - Off label use [Unknown]
  - Pancytopenia [Fatal]
  - Myelodysplastic syndrome [Fatal]
  - Dysplasia [Fatal]
  - Leukoerythroblastosis [Fatal]
  - Gene mutation [Fatal]
  - Drug ineffective [Fatal]
